FAERS Safety Report 7739896-4 (Version None)
Quarter: 2011Q3

REPORT INFORMATION
  Report Type: 
  Country: None (occurrence: None)
  Receive Date: 20110909
  Receipt Date: 20110905
  Transmission Date: 20111222
  Serious: Yes (Life-Threatening, Hospitalization, Other)
  Sender: FDA-Public Use
  Company Number: PHHY2011BR79655

PATIENT
  Sex: Male

DRUGS (1)
  1. EXELON [Suspect]
     Indication: MEMORY IMPAIRMENT
     Dosage: 1 ML, BID
     Route: 048
     Dates: start: 20100901

REACTIONS (2)
  - COMA [None]
  - PNEUMONIA [None]
